FAERS Safety Report 14433202 (Version 1)
Quarter: 2018Q1

REPORT INFORMATION
  Report Type: Spontaneous
  Country: US (occurrence: US)
  Receive Date: 20180124
  Receipt Date: 20180124
  Transmission Date: 20180509
  Serious: Yes (Other)
  Sender: FDA-Public Use
  Company Number: US-PIRAMAL CRITICAL CARE LIMITED-2017-PEL-003123

PATIENT

DRUGS (17)
  1. GABLOFEN [Suspect]
     Active Substance: BACLOFEN
     Dosage: 766 ?G, QD
     Route: 037
     Dates: start: 20170722
  2. AMPYRA [Concomitant]
     Active Substance: DALFAMPRIDINE
     Dosage: 10 MG, BID
     Route: 065
  3. VITAMIN B COMPLEX [Concomitant]
     Active Substance: CYANOCOBALAMIN\DEXPANTHENOL\NIACINAMIDE\PYRIDOXINE HYDROCHLORIDE\RIBOFLAVIN 5^-PHOSPHATE SODIUM\THIAMINE HYDROCHLORIDE\VITAMIN B COMPLEX
     Dosage: UNK, QD
     Route: 065
  4. GABLOFEN [Suspect]
     Active Substance: BACLOFEN
     Dosage: 400 ?G, QD
     Route: 037
  5. CONCERTA [Concomitant]
     Active Substance: METHYLPHENIDATE HYDROCHLORIDE
     Dosage: 36 MG, QD
     Route: 065
  6. GABLOFEN [Suspect]
     Active Substance: BACLOFEN
     Dosage: 900 ?G, QD
     Route: 065
  7. GABLOFEN [Suspect]
     Active Substance: BACLOFEN
     Dosage: 823.9 ?G, QD
     Route: 037
     Dates: start: 20160908
  8. RETALIN [Concomitant]
     Active Substance: SERTRALINE HYDROCHLORIDE
     Dosage: 5 MG, BID
     Route: 065
  9. GABLOFEN [Suspect]
     Active Substance: BACLOFEN
     Indication: MUSCLE SPASTICITY
     Dosage: UNK
     Route: 037
     Dates: start: 2010
  10. GABLOFEN [Suspect]
     Active Substance: BACLOFEN
     Dosage: 906 ?G, QD
     Route: 037
     Dates: end: 20170721
  11. CELEXA [Concomitant]
     Active Substance: CITALOPRAM HYDROBROMIDE
     Dosage: 40 MG, QD
     Route: 065
  12. LOVAZA [Concomitant]
     Active Substance: OMEGA-3-ACID ETHYL ESTERS
     Dosage: 2 G, BID
     Route: 065
  13. GABLOFEN [Suspect]
     Active Substance: BACLOFEN
     Dosage: 800 ?G, QD
     Route: 037
     Dates: start: 20160908
  14. BIOTIN [Concomitant]
     Active Substance: BIOTIN
     Dosage: 10 MG, BID
     Route: 065
  15. VITAMIN D3 [Concomitant]
     Active Substance: CHOLECALCIFEROL
     Dosage: 1000 IU, QD
     Route: 065
  16. DIAZEPAM. [Concomitant]
     Active Substance: DIAZEPAM
     Dosage: 5 MG, BID
     Route: 065
  17. GABLOFEN [Suspect]
     Active Substance: BACLOFEN
     Dosage: 200 ?G, QD
     Route: 065
     Dates: start: 20170808

REACTIONS (17)
  - Pruritus [Unknown]
  - Underdose [Unknown]
  - Tremor [None]
  - Overdose [Unknown]
  - Condition aggravated [Recovered/Resolved]
  - Hypotonia [None]
  - Formication [Unknown]
  - Gait inability [None]
  - Mental status changes [None]
  - Device infusion issue [Unknown]
  - Somnolence [Unknown]
  - Unresponsive to stimuli [Unknown]
  - Withdrawal syndrome [None]
  - Muscle rigidity [Recovered/Resolved]
  - Therapy non-responder [Unknown]
  - Confusional state [Unknown]
  - Muscular weakness [None]

NARRATIVE: CASE EVENT DATE: 201610
